FAERS Safety Report 6139818-6 (Version None)
Quarter: 2009Q2

REPORT INFORMATION
  Report Type: 
  Country: None (occurrence: None)
  Receive Date: 20090401
  Receipt Date: 20090327
  Transmission Date: 20091009
  Serious: Yes (Hospitalization)
  Sender: FDA-Public Use
  Company Number: B0567247A

PATIENT
  Sex: Male

DRUGS (7)
  1. AUGMENTIN '125' [Suspect]
     Dosage: 1G THREE TIMES PER DAY
     Route: 042
     Dates: start: 20090111, end: 20090116
  2. ARIXTRA [Suspect]
     Indication: THROMBOSIS PROPHYLAXIS
     Route: 058
     Dates: start: 20090116, end: 20090119
  3. TIENAM [Suspect]
     Dosage: 500MG THREE TIMES PER DAY
     Route: 042
     Dates: start: 20090117, end: 20090119
  4. VANCOMYCINE [Suspect]
     Dosage: 500MG THREE TIMES PER DAY
     Route: 042
     Dates: start: 20090118, end: 20090118
  5. CIPROFLOXACIN HCL [Suspect]
     Dosage: 400MG THREE TIMES PER DAY
     Route: 042
     Dates: start: 20090118, end: 20090118
  6. MODOPAR [Concomitant]
     Indication: PARKINSON'S DISEASE
     Dosage: 62.5MG FOUR TIMES PER DAY
     Route: 048
  7. LOVENOX [Concomitant]
     Route: 065

REACTIONS (3)
  - DERMATITIS EXFOLIATIVE [None]
  - ERYTHEMA [None]
  - SKIN EXFOLIATION [None]
